FAERS Safety Report 20095185 (Version 1)
Quarter: 2021Q4

REPORT INFORMATION
  Report Type: Spontaneous
  Country: CA (occurrence: CA)
  Receive Date: 20211122
  Receipt Date: 20211122
  Transmission Date: 20220303
  Serious: Yes (Hospitalization, Other)
  Sender: FDA-Public Use
  Company Number: None

PATIENT

DRUGS (12)
  1. CEFOTAXIME SODIUM [Suspect]
     Active Substance: CEFOTAXIME SODIUM
     Indication: Evidence based treatment
     Dosage: INJECTION
     Route: 065
  2. CEFOTAXIME SODIUM [Suspect]
     Active Substance: CEFOTAXIME SODIUM
     Indication: Meningitis
  3. CEFOTAXIME SODIUM [Suspect]
     Active Substance: CEFOTAXIME SODIUM
     Indication: Pleocytosis
  4. RIFAMPIN [Suspect]
     Active Substance: RIFAMPIN
     Indication: Evidence based treatment
     Dosage: UNK
     Route: 065
  5. RIFAMPIN [Suspect]
     Active Substance: RIFAMPIN
     Indication: Meningitis
  6. RIFAMPIN [Suspect]
     Active Substance: RIFAMPIN
     Indication: Pleocytosis
  7. AMPICILLIN [Suspect]
     Active Substance: AMPICILLIN
     Indication: Meningitis haemophilus
     Dosage: UNK
     Route: 065
  8. VANCOMYCIN [Suspect]
     Active Substance: VANCOMYCIN
     Indication: Evidence based treatment
     Dosage: UNK
     Route: 065
  9. VANCOMYCIN [Suspect]
     Active Substance: VANCOMYCIN
     Indication: Bacterial sepsis
     Dosage: UNK, COMPLETED COURSE OF VANCOMYCIN
     Route: 065
  10. VANCOMYCIN [Suspect]
     Active Substance: VANCOMYCIN
     Indication: Bacillus infection
  11. VANCOMYCIN [Suspect]
     Active Substance: VANCOMYCIN
     Indication: Meningitis
  12. VANCOMYCIN [Suspect]
     Active Substance: VANCOMYCIN
     Indication: Pleocytosis

REACTIONS (1)
  - Candida infection [Recovered/Resolved]
